FAERS Safety Report 8962775 (Version 3)
Quarter: 2013Q2

REPORT INFORMATION
  Report Type: Spontaneous
  Country: FR (occurrence: FR)
  Receive Date: 20121214
  Receipt Date: 20130530
  Transmission Date: 20140414
  Serious: Yes (Hospitalization)
  Sender: FDA-Public Use
  Company Number: FR-JNJFOC-20121202058

PATIENT
  Age: 81 Year
  Sex: Male

DRUGS (2)
  1. ZYTIGA [Suspect]
     Indication: PROSTATE CANCER
     Route: 048
     Dates: end: 20121009
  2. PROCORALAN [Concomitant]
     Indication: ARRHYTHMIA SUPRAVENTRICULAR
     Route: 065

REACTIONS (8)
  - General physical health deterioration [Recovered/Resolved]
  - Fatigue [Recovered/Resolved]
  - Malaise [Recovered/Resolved]
  - Presyncope [Unknown]
  - Arrhythmia supraventricular [Recovered/Resolved]
  - Cardiac failure [Unknown]
  - Drug-induced liver injury [Recovered/Resolved]
  - Cholelithiasis [Unknown]
